FAERS Safety Report 13015233 (Version 2)
Quarter: 2017Q1

REPORT INFORMATION
  Report Type: Spontaneous
  Country: IT (occurrence: IT)
  Receive Date: 20161211
  Receipt Date: 20170117
  Transmission Date: 20170428
  Serious: Yes (Other)
  Sender: FDA-Public Use
  Company Number: IT-TEVA-717116ACC

PATIENT

DRUGS (5)
  1. CLOZAPINE. [Suspect]
     Active Substance: CLOZAPINE
  2. LITIO [Suspect]
     Active Substance: LITHIUM CARBONATE
  3. DISULFIRAM. [Suspect]
     Active Substance: DISULFIRAM
  4. BACLOFEN. [Suspect]
     Active Substance: BACLOFEN
  5. CARBAMAZEPINA [Suspect]
     Active Substance: CARBAMAZEPINE

REACTIONS (2)
  - Poisoning [Unknown]
  - Confusional state [Unknown]
